FAERS Safety Report 23128654 (Version 2)
Quarter: 2023Q4

REPORT INFORMATION
  Report Type: Spontaneous
  Country: PL (occurrence: PL)
  Receive Date: 20231031
  Receipt Date: 20231122
  Transmission Date: 20240110
  Serious: Yes (Other)
  Sender: FDA-Public Use
  Company Number: PL-ABBVIE-5474039

PATIENT
  Age: 88 Year
  Sex: Male

DRUGS (8)
  1. VENETOCLAX [Suspect]
     Active Substance: VENETOCLAX
     Indication: Chronic lymphocytic leukaemia
     Dosage: LAST ADMIN DATE JUN 2022
     Route: 048
     Dates: start: 20220622
  2. VENETOCLAX [Suspect]
     Active Substance: VENETOCLAX
     Indication: Chronic lymphocytic leukaemia
     Dosage: LAST ADMIN DATE JUN 2022
     Route: 048
     Dates: start: 20220601
  3. VENETOCLAX [Suspect]
     Active Substance: VENETOCLAX
     Indication: Chronic lymphocytic leukaemia
     Dosage: LAST ADMIN DATE JUN 2022
     Route: 048
     Dates: start: 20220608
  4. VENETOCLAX [Suspect]
     Active Substance: VENETOCLAX
     Indication: Chronic lymphocytic leukaemia
     Dosage: LAST ADMIN DATE JUN 2022
     Route: 048
     Dates: start: 20220615
  5. VENETOCLAX [Suspect]
     Active Substance: VENETOCLAX
     Indication: Chronic lymphocytic leukaemia
     Dosage: LAST ADMIN DATE JUN 2022
     Route: 048
     Dates: start: 20220629
  6. OBINUTUZUMAB [Concomitant]
     Active Substance: OBINUTUZUMAB
     Indication: Chronic lymphocytic leukaemia
     Dosage: LAST ADMIN DATE MAY 2022
     Dates: start: 20220519
  7. OBINUTUZUMAB [Concomitant]
     Active Substance: OBINUTUZUMAB
     Indication: Chronic lymphocytic leukaemia
     Dosage: LAST ADMIN DATE MAY 2022
     Dates: start: 20220526
  8. OBINUTUZUMAB [Concomitant]
     Active Substance: OBINUTUZUMAB
     Indication: Chronic lymphocytic leukaemia
     Dosage: LAST ADMIN DATE MAY 2022
     Dates: start: 20220511

REACTIONS (3)
  - Basal cell carcinoma [Unknown]
  - Infection [Recovered/Resolved]
  - Polycythaemia vera [Unknown]

NARRATIVE: CASE EVENT DATE: 20230101
